FAERS Safety Report 6512415-6 (Version None)
Quarter: 2009Q4

REPORT INFORMATION
  Report Type: 
  Country: None (occurrence: None)
  Receive Date: 20091217
  Receipt Date: 20091204
  Transmission Date: 20100525
  Serious: Yes (Hospitalization, Other)
  Sender: FDA-Public Use
  Company Number: 236384K09USA

PATIENT
  Age: 28 Year
  Sex: Female

DRUGS (2)
  1. REBIF [Suspect]
     Indication: MULTIPLE SCLEROSIS
     Dosage: 44 MCG, 3 IN 1 WEEKS, SUBCUTANEOUS
     Route: 058
     Dates: start: 20090408, end: 20090901
  2. UNSPECIFIED MEDICATIONS (ALL OTHER THERAPEUTIC PRODUCTS) [Concomitant]

REACTIONS (16)
  - BACK PAIN [None]
  - CONDITION AGGRAVATED [None]
  - DEHYDRATION [None]
  - DISORIENTATION [None]
  - DIZZINESS [None]
  - DRUG DOSE OMISSION [None]
  - DRUG INEFFECTIVE [None]
  - HEAD INJURY [None]
  - HEADACHE [None]
  - INAPPROPRIATE AFFECT [None]
  - LOSS OF CONSCIOUSNESS [None]
  - MALAISE [None]
  - MULTIPLE SCLEROSIS [None]
  - NAUSEA [None]
  - SPEECH DISORDER [None]
  - VISUAL IMPAIRMENT [None]
